FAERS Safety Report 8047829-9 (Version None)
Quarter: 2012Q1

REPORT INFORMATION
  Report Type: 
  Country: None (occurrence: None)
  Receive Date: 20120116
  Receipt Date: 20120105
  Transmission Date: 20120608
  Serious: Yes (Other)
  Sender: FDA-Public Use
  Company Number: PHHY2012FR001284

PATIENT
  Sex: Female

DRUGS (7)
  1. NICARDIPINE HCL [Concomitant]
     Dosage: 20 MG, UNK
     Route: 048
     Dates: start: 20111203, end: 20111206
  2. TEGRETOL [Suspect]
     Indication: EPILEPSY
     Dosage: 600 MG, UNK
     Route: 048
     Dates: start: 20111030, end: 20111206
  3. PHENOBARBITAL TAB [Suspect]
     Indication: EPILEPSY
     Dosage: 300 MG, UNK
     Dates: start: 20111204, end: 20111206
  4. PHENYTOIN [Concomitant]
     Dosage: 300 MG, UNK
     Dates: start: 20111203, end: 20111206
  5. PENTOTHAL [Suspect]
     Indication: SEDATION
  6. ROCEPHIN [Suspect]
     Route: 042
  7. FLAGYL [Suspect]
     Indication: SEPSIS
     Route: 042

REACTIONS (7)
  - TOXIC SKIN ERUPTION [None]
  - PYREXIA [None]
  - ENCEPHALITIS [None]
  - THYROIDITIS [None]
  - RASH MACULO-PAPULAR [None]
  - RASH MORBILLIFORM [None]
  - DERMATITIS EXFOLIATIVE [None]
